FAERS Safety Report 23349537 (Version 1)
Quarter: 2023Q4

REPORT INFORMATION
  Report Type: Spontaneous
  Country: CN (occurrence: None)
  Receive Date: 20231229
  Receipt Date: 20231229
  Transmission Date: 20240109
  Serious: Yes (Hospitalization)
  Sender: FDA-Public Use
  Company Number: CN-ROCHE-3481323

PATIENT
  Age: 73 Year
  Sex: Male
  Weight: 60 kg

DRUGS (6)
  1. PERJETA [Suspect]
     Active Substance: PERTUZUMAB
     Indication: Gallbladder cancer
     Route: 041
     Dates: start: 20231016, end: 20231016
  2. PERJETA [Suspect]
     Active Substance: PERTUZUMAB
     Indication: Metastases to liver
  3. INVESTIGATIONAL PRODUCT [Suspect]
     Active Substance: INVESTIGATIONAL PRODUCT
     Indication: Gallbladder cancer
     Route: 041
     Dates: start: 20231016, end: 20231016
  4. INVESTIGATIONAL PRODUCT [Suspect]
     Active Substance: INVESTIGATIONAL PRODUCT
     Indication: Metastases to liver
  5. PYROTINIB [Suspect]
     Active Substance: PYROTINIB
     Indication: Gallbladder cancer
     Route: 048
     Dates: start: 20231018, end: 20231023
  6. PYROTINIB [Suspect]
     Active Substance: PYROTINIB
     Indication: Metastases to liver

REACTIONS (5)
  - Gastrointestinal disorder [Recovering/Resolving]
  - Pyrexia [Recovering/Resolving]
  - Chills [Recovering/Resolving]
  - Asthenia [Unknown]
  - Off label use [Unknown]

NARRATIVE: CASE EVENT DATE: 20231016
